FAERS Safety Report 20062576 (Version 1)
Quarter: 2021Q4

REPORT INFORMATION
  Report Type: Spontaneous
  Country: US (occurrence: US)
  Receive Date: 20211112
  Receipt Date: 20211112
  Transmission Date: 20220303
  Serious: Yes (Other)
  Sender: FDA-Public Use
  Company Number: US-ELI_LILLY_AND_COMPANY-US202111002858

PATIENT
  Sex: Female

DRUGS (2)
  1. EMGALITY [Suspect]
     Active Substance: GALCANEZUMAB-GNLM
     Indication: Migraine
     Dosage: 120 MG, UNKNOWN
     Route: 065
     Dates: start: 202108
  2. SUMATRIPTAN [Suspect]
     Active Substance: SUMATRIPTAN
     Indication: Migraine
     Dosage: UNK UNK, UNKNOWN
     Route: 065

REACTIONS (4)
  - Ventricular tachycardia [Unknown]
  - Feeling abnormal [Unknown]
  - Headache [Unknown]
  - Therapeutic response shortened [Unknown]

NARRATIVE: CASE EVENT DATE: 20210801
